FAERS Safety Report 17580229 (Version 30)
Quarter: 2024Q4

REPORT INFORMATION
  Report Type: Spontaneous
  Country: CA (occurrence: CA)
  Receive Date: 20200325
  Receipt Date: 20241209
  Transmission Date: 20250114
  Serious: Yes (Hospitalization, Disabling, Other)
  Sender: BIOVITRUM
  Company Number: CA-BIOVITRUM-2020CA1335

PATIENT
  Age: 52 Year
  Sex: Female

DRUGS (242)
  1. ANAKINRA [Suspect]
     Active Substance: ANAKINRA
     Indication: Rheumatoid arthritis
     Route: 058
  2. ANAKINRA [Suspect]
     Active Substance: ANAKINRA
     Indication: Juvenile idiopathic arthritis
     Dosage: 1 EVERY 1 DAY
     Route: 058
  3. ANAKINRA [Suspect]
     Active Substance: ANAKINRA
     Indication: Product used for unknown indication
     Route: 065
  4. ANAKINRA [Suspect]
     Active Substance: ANAKINRA
     Dosage: EVERY OTHER DAY
     Route: 058
  5. ANAKINRA [Suspect]
     Active Substance: ANAKINRA
     Dosage: 1 EVERY 1 DAY/ 1 EVERY 24 HOURS
     Route: 065
  6. ACTEMRA [Suspect]
     Active Substance: TOCILIZUMAB
     Indication: Rheumatoid arthritis
     Route: 042
  7. ACTEMRA [Suspect]
     Active Substance: TOCILIZUMAB
     Indication: Juvenile idiopathic arthritis
     Route: 058
  8. ACTEMRA [Suspect]
     Active Substance: TOCILIZUMAB
     Indication: Product used for unknown indication
     Dosage: CYCLICAL
     Route: 042
  9. ACTEMRA [Suspect]
     Active Substance: TOCILIZUMAB
     Route: 042
  10. ACTEMRA [Suspect]
     Active Substance: TOCILIZUMAB
     Route: 042
  11. ACTEMRA [Suspect]
     Active Substance: TOCILIZUMAB
     Route: 065
  12. ACTEMRA [Suspect]
     Active Substance: TOCILIZUMAB
     Dosage: CYCLICAL
     Route: 042
  13. ACTEMRA [Suspect]
     Active Substance: TOCILIZUMAB
     Dosage: NOT SPECIFIED
     Route: 042
  14. ACTEMRA [Suspect]
     Active Substance: TOCILIZUMAB
     Route: 042
  15. ACTEMRA [Suspect]
     Active Substance: TOCILIZUMAB
     Route: 065
  16. ACTEMRA [Suspect]
     Active Substance: TOCILIZUMAB
     Route: 065
  17. ACTEMRA [Suspect]
     Active Substance: TOCILIZUMAB
     Route: 065
  18. ACTEMRA [Suspect]
     Active Substance: TOCILIZUMAB
     Route: 065
  19. ADALIMUMAB [Suspect]
     Active Substance: ADALIMUMAB
     Indication: Juvenile idiopathic arthritis
     Dosage: SOLUTION SUBCUTANEOUS
     Route: 058
  20. ADALIMUMAB [Suspect]
     Active Substance: ADALIMUMAB
     Indication: Product used for unknown indication
     Route: 058
  21. LEFLUNOMIDE [Suspect]
     Active Substance: LEFLUNOMIDE
     Indication: Rheumatoid arthritis
     Dosage: 6 EVERY ONE DAY
     Route: 048
  22. LEFLUNOMIDE [Suspect]
     Active Substance: LEFLUNOMIDE
     Indication: Product used for unknown indication
     Dosage: 1 EVERY 1 DAY
     Route: 048
  23. LEFLUNOMIDE [Suspect]
     Active Substance: LEFLUNOMIDE
     Dosage: 1 HOUR
  24. LEFLUNOMIDE [Suspect]
     Active Substance: LEFLUNOMIDE
     Dosage: 6 EVERY ONE DAY
     Route: 048
  25. LEFLUNOMIDE [Suspect]
     Active Substance: LEFLUNOMIDE
     Route: 065
  26. LEFLUNOMIDE [Suspect]
     Active Substance: LEFLUNOMIDE
     Dosage: 2 EVERY 1 DAY
     Route: 048
  27. LEFLUNOMIDE [Suspect]
     Active Substance: LEFLUNOMIDE
     Route: 048
  28. LEFLUNOMIDE [Suspect]
     Active Substance: LEFLUNOMIDE
     Dosage: 1 EVERY 1 DAY/ 1 EVERY 24 HR
     Route: 065
  29. NAPROXEN [Suspect]
     Active Substance: NAPROXEN
     Indication: Juvenile idiopathic arthritis
     Dosage: NOT SPECIFIED
     Route: 065
  30. NAPROXEN [Suspect]
     Active Substance: NAPROXEN
     Indication: Product used for unknown indication
  31. PREDNISONE [Suspect]
     Active Substance: PREDNISONE
     Indication: Juvenile idiopathic arthritis
     Dosage: 2 EVERY ONE DAY
     Route: 048
  32. PREDNISONE [Suspect]
     Active Substance: PREDNISONE
     Indication: Product used for unknown indication
     Dosage: 2 EVRY ONE DAY
     Route: 048
  33. PREDNISONE [Suspect]
     Active Substance: PREDNISONE
     Indication: Rheumatoid arthritis
     Dosage: 1 EVERY ONE WEEK
     Route: 048
  34. PREDNISONE [Suspect]
     Active Substance: PREDNISONE
     Route: 065
  35. PREDNISONE [Suspect]
     Active Substance: PREDNISONE
     Dosage: 2 EVRY ONE DAY
     Route: 065
  36. PREDNISONE [Suspect]
     Active Substance: PREDNISONE
     Route: 048
  37. PREDNISONE [Suspect]
     Active Substance: PREDNISONE
     Dosage: 2 EVERY ONE DAY
     Route: 065
  38. PREDNISONE [Suspect]
     Active Substance: PREDNISONE
     Dosage: 1 EVERY  24 HOURS
     Route: 065
  39. PREDNISONE [Suspect]
     Active Substance: PREDNISONE
     Route: 065
  40. ARAVA [Suspect]
     Active Substance: LEFLUNOMIDE
     Indication: Rheumatoid arthritis
     Dosage: EVERY DAY
     Route: 048
  41. ARAVA [Suspect]
     Active Substance: LEFLUNOMIDE
     Route: 058
  42. ARAVA [Suspect]
     Active Substance: LEFLUNOMIDE
     Dosage: 1 EVERY 1 DAY
     Route: 048
  43. ARAVA [Suspect]
     Active Substance: LEFLUNOMIDE
     Dosage: 1 EVERY 1 DAY/ 1 EVERY 24 HOURS
     Route: 065
  44. ARAVA [Suspect]
     Active Substance: LEFLUNOMIDE
     Dosage: 2 EVERY 1 DAYS
     Route: 058
  45. CIMZIA [Suspect]
     Active Substance: CERTOLIZUMAB PEGOL
     Indication: Rheumatoid arthritis
     Dosage: SINGLE-USE PREFILLED SYRINGE
     Route: 058
  46. CIMZIA [Suspect]
     Active Substance: CERTOLIZUMAB PEGOL
  47. ENBREL [Suspect]
     Active Substance: ETANERCEPT
     Indication: Rheumatoid arthritis
     Dosage: ONCE A WEEK, CYCLICAL
     Route: 065
  48. ENBREL [Suspect]
     Active Substance: ETANERCEPT
     Indication: Juvenile idiopathic arthritis
     Dosage: TWICE A WEEK, CYCLICAL
     Route: 065
  49. ENBREL [Suspect]
     Active Substance: ETANERCEPT
     Indication: Product used for unknown indication
     Route: 058
  50. ENBREL [Suspect]
     Active Substance: ETANERCEPT
     Route: 058
  51. ENBREL [Suspect]
     Active Substance: ETANERCEPT
     Dosage: ONCE A WEEK
     Route: 065
  52. ENBREL [Suspect]
     Active Substance: ETANERCEPT
     Dosage: CYCLICAL
     Route: 065
  53. GOLD [Suspect]
     Active Substance: GOLD
     Indication: Rheumatoid arthritis
     Route: 065
  54. GOLD [Suspect]
     Active Substance: GOLD
     Indication: Product used for unknown indication
     Route: 065
  55. HUMIRA [Suspect]
     Active Substance: ADALIMUMAB
     Indication: Rheumatoid arthritis
     Dosage: TWICE A WEEK,
     Route: 058
  56. HUMIRA [Suspect]
     Active Substance: ADALIMUMAB
     Indication: Juvenile idiopathic arthritis
     Dosage: SOLUTION FOR INJECTION IN PREFILLED SYRINGE
  57. HUMIRA [Suspect]
     Active Substance: ADALIMUMAB
     Indication: Product used for unknown indication
     Dosage: 1 EVERY ONE WEEK, SOLUTION FOR INJECTION IN PREFILLED SYRINGE
     Route: 058
  58. HUMIRA [Suspect]
     Active Substance: ADALIMUMAB
     Dosage: SOLUTION FOR INJECTION IN PREFILLED SYRINGE
  59. HUMIRA [Suspect]
     Active Substance: ADALIMUMAB
     Dosage: SUBCUTANEOUS SOLUTION
     Route: 058
  60. HYDROXYCHLOROQUINE [Suspect]
     Active Substance: HYDROXYCHLOROQUINE
     Indication: Rheumatoid arthritis
     Dosage: EVERY DAY/ 1 EVERY 24 HRS
     Route: 048
  61. HYDROXYCHLOROQUINE [Suspect]
     Active Substance: HYDROXYCHLOROQUINE
     Indication: Juvenile idiopathic arthritis
     Route: 048
  62. HYDROXYCHLOROQUINE [Suspect]
     Active Substance: HYDROXYCHLOROQUINE
     Dosage: 1 DOSAGE FORM EVERY ONE DAY
  63. HYDROXYCHLOROQUINE [Suspect]
     Active Substance: HYDROXYCHLOROQUINE
     Route: 048
  64. HYDROXYCHLOROQUINE [Suspect]
     Active Substance: HYDROXYCHLOROQUINE
  65. HYDROXYCHLOROQUINE [Suspect]
     Active Substance: HYDROXYCHLOROQUINE
     Dosage: 1 EVERY 1 DAY
     Route: 048
  66. HYDROXYCHLOROQUINE [Suspect]
     Active Substance: HYDROXYCHLOROQUINE
     Dosage: 4 EVERY 1 DAYS
     Route: 048
  67. HYDROXYCHLOROQUINE SULFATE [Suspect]
     Active Substance: HYDROXYCHLOROQUINE SULFATE
     Indication: Rheumatoid arthritis
     Dosage: ONCE DAILY
  68. HYDROXYCHLOROQUINE SULFATE [Suspect]
     Active Substance: HYDROXYCHLOROQUINE SULFATE
     Dosage: ONCE WEEKLY
  69. HYDROXYCHLOROQUINE SULFATE [Suspect]
     Active Substance: HYDROXYCHLOROQUINE SULFATE
  70. HYDROXYCHLOROQUINE SULFATE [Suspect]
     Active Substance: HYDROXYCHLOROQUINE SULFATE
     Dosage: ONCE IN ONE HOUR
  71. HYDROXYCHLOROQUINE SULFATE [Suspect]
     Active Substance: HYDROXYCHLOROQUINE SULFATE
     Dosage: TWICE DAILY
  72. HYDROXYCHLOROQUINE SULFATE [Suspect]
     Active Substance: HYDROXYCHLOROQUINE SULFATE
     Dosage: CYCLICAL
  73. HYDROXYCHLOROQUINE SULFATE [Suspect]
     Active Substance: HYDROXYCHLOROQUINE SULFATE
     Dosage: 1.0 DOSAGE FORMS, ONCE DAILY
  74. HYDROXYCHLOROQUINE SULFATE [Suspect]
     Active Substance: HYDROXYCHLOROQUINE SULFATE
     Dosage: FOUR TIMES DAILY
  75. HYDROXYCHLOROQUINE SULFATE [Suspect]
     Active Substance: HYDROXYCHLOROQUINE SULFATE
     Dosage: ONCE DAILY
  76. INFLIXIMAB [Suspect]
     Active Substance: INFLIXIMAB
     Indication: Juvenile idiopathic arthritis
     Route: 042
  77. INFLIXIMAB [Suspect]
     Active Substance: INFLIXIMAB
     Indication: Product used for unknown indication
     Route: 042
  78. INFLIXIMAB [Suspect]
     Active Substance: INFLIXIMAB
  79. LEFLUNOMIDE [Suspect]
     Active Substance: LEFLUNOMIDE
     Indication: Rheumatoid arthritis
     Dosage: 6 EVERY 1 DAY
     Route: 048
  80. LEFLUNOMIDE [Suspect]
     Active Substance: LEFLUNOMIDE
     Dosage: 1 EVER 1 DAYS
     Route: 048
  81. LEFLUNOMIDE [Suspect]
     Active Substance: LEFLUNOMIDE
  82. LEFLUNOMIDE [Suspect]
     Active Substance: LEFLUNOMIDE
     Dosage: CYCLICAL
  83. LEFLUNOMIDE [Suspect]
     Active Substance: LEFLUNOMIDE
     Dosage: SIX EVERY ONE DAY
  84. LEFLUNOMIDE [Suspect]
     Active Substance: LEFLUNOMIDE
     Route: 048
  85. METHOTREXATE [Suspect]
     Active Substance: METHOTREXATE
     Indication: Rheumatoid arthritis
     Dosage: 2 EVERY ONE WEEK
     Route: 058
  86. METHOTREXATE [Suspect]
     Active Substance: METHOTREXATE
     Indication: Juvenile idiopathic arthritis
  87. METHOTREXATE [Suspect]
     Active Substance: METHOTREXATE
     Indication: Product used for unknown indication
  88. METHOTREXATE [Suspect]
     Active Substance: METHOTREXATE
     Route: 058
  89. METHOTREXATE [Suspect]
     Active Substance: METHOTREXATE
     Dosage: NOT SPECIFIED
     Route: 065
  90. METHOTREXATE [Suspect]
     Active Substance: METHOTREXATE
     Dosage: ONCE A WEEK
  91. METHOTREXATE [Suspect]
     Active Substance: METHOTREXATE
     Dosage: ONCE A WEEK
     Route: 058
  92. METHOTREXATE [Suspect]
     Active Substance: METHOTREXATE
     Dosage: ONCE A DAY
  93. METHOTREXATE [Suspect]
     Active Substance: METHOTREXATE
     Dosage: 2 TIMES A WEEK
  94. METHOTREXATE [Suspect]
     Active Substance: METHOTREXATE
     Route: 058
  95. METHOTREXATE [Suspect]
     Active Substance: METHOTREXATE
     Route: 058
  96. METHOTREXATE [Suspect]
     Active Substance: METHOTREXATE
     Route: 048
  97. METHOTREXATE [Suspect]
     Active Substance: METHOTREXATE
     Route: 058
  98. METHOTREXATE [Suspect]
     Active Substance: METHOTREXATE
     Route: 048
  99. METHOTREXATE [Suspect]
     Active Substance: METHOTREXATE
     Route: 065
  100. METHOTREXATE [Suspect]
     Active Substance: METHOTREXATE
     Route: 065
  101. NAPROXEN [Suspect]
     Active Substance: NAPROXEN
     Indication: Juvenile idiopathic arthritis
     Dosage: NOT SPECIFIED
     Route: 065
  102. NAPROXEN [Suspect]
     Active Substance: NAPROXEN
     Indication: Product used for unknown indication
     Dosage: NOT SPECIFIED
     Route: 065
  103. NAPROXEN [Suspect]
     Active Substance: NAPROXEN
     Indication: Rheumatoid arthritis
  104. ORENCIA [Suspect]
     Active Substance: ABATACEPT
     Indication: Rheumatoid arthritis
  105. ORENCIA [Suspect]
     Active Substance: ABATACEPT
     Indication: Juvenile idiopathic arthritis
  106. ORENCIA [Suspect]
     Active Substance: ABATACEPT
     Indication: Product used for unknown indication
     Dosage: 1 EVERY ONE MONTH
     Route: 042
  107. ORENCIA [Suspect]
     Active Substance: ABATACEPT
     Route: 065
  108. ORENCIA [Suspect]
     Active Substance: ABATACEPT
     Route: 042
  109. ORENCIA [Suspect]
     Active Substance: ABATACEPT
     Route: 042
  110. ORENCIA [Suspect]
     Active Substance: ABATACEPT
     Dosage: 1 EVERY 3 WEEKS
     Route: 058
  111. ORENCIA [Suspect]
     Active Substance: ABATACEPT
     Route: 042
  112. ORENCIA [Suspect]
     Active Substance: ABATACEPT
     Route: 065
  113. ORENCIA [Suspect]
     Active Substance: ABATACEPT
     Route: 042
  114. ORENCIA [Suspect]
     Active Substance: ABATACEPT
     Route: 058
  115. ORENCIA [Suspect]
     Active Substance: ABATACEPT
     Route: 065
  116. PREDNISONE [Suspect]
     Active Substance: PREDNISONE
     Indication: Juvenile idiopathic arthritis
     Dosage: 2 EVERY 1 DAY
     Route: 048
  117. PREDNISONE [Suspect]
     Active Substance: PREDNISONE
     Indication: Product used for unknown indication
     Dosage: 2 EVERY 1 DAY
     Route: 048
  118. PREDNISONE [Suspect]
     Active Substance: PREDNISONE
     Indication: Rheumatoid arthritis
     Route: 048
  119. PREDNISONE [Suspect]
     Active Substance: PREDNISONE
  120. PREDNISONE [Suspect]
     Active Substance: PREDNISONE
     Dosage: 2 EVERY 1 DAY
     Route: 048
  121. PREDNISONE [Suspect]
     Active Substance: PREDNISONE
     Route: 065
  122. PREDNISONE [Suspect]
     Active Substance: PREDNISONE
     Dosage: 2 EVERY 1 DAY
     Route: 048
  123. PREDNISONE [Suspect]
     Active Substance: PREDNISONE
     Route: 042
  124. REMICADE [Suspect]
     Active Substance: INFLIXIMAB
     Indication: Rheumatoid arthritis
     Dosage: ONCE IN WEEK
  125. REMICADE [Suspect]
     Active Substance: INFLIXIMAB
     Route: 042
  126. REMICADE [Suspect]
     Active Substance: INFLIXIMAB
     Route: 042
  127. REMICADE [Suspect]
     Active Substance: INFLIXIMAB
     Route: 042
  128. REMICADE [Suspect]
     Active Substance: INFLIXIMAB
     Dosage: 1 EVERY 1 WEEK
     Route: 042
  129. REMICADE [Suspect]
     Active Substance: INFLIXIMAB
     Route: 065
  130. REMICADE [Suspect]
     Active Substance: INFLIXIMAB
     Route: 065
  131. RITUXIMAB [Suspect]
     Active Substance: RITUXIMAB
     Indication: Rheumatoid arthritis
     Route: 042
  132. RITUXIMAB [Suspect]
     Active Substance: RITUXIMAB
     Indication: Product used for unknown indication
     Dosage: CYCLICAL
  133. RITUXIMAB [Suspect]
     Active Substance: RITUXIMAB
  134. RITUXIMAB [Suspect]
     Active Substance: RITUXIMAB
     Route: 058
  135. RITUXIMAB [Suspect]
     Active Substance: RITUXIMAB
     Dosage: 1 EVERY 1 DAY/ 1 EVERY 24 HOURS
     Route: 065
  136. RITUXIMAB [Suspect]
     Active Substance: RITUXIMAB
     Route: 065
  137. RITUXIMAB [Suspect]
     Active Substance: RITUXIMAB
     Dosage: 1 EVERY 3 WEEKS
     Route: 058
  138. RITUXIMAB [Suspect]
     Active Substance: RITUXIMAB
     Dosage: 1 EVERY 1 DAY/ 1 EVERY 24 HRS
     Route: 042
  139. RITUXIMAB [Suspect]
     Active Substance: RITUXIMAB
     Dosage: 1 EVERY 3 WEEKS
     Route: 058
  140. RITUXIMAB [Suspect]
     Active Substance: RITUXIMAB
     Dosage: 1 EVERY 1 DAY
     Route: 058
  141. RITUXIMAB [Suspect]
     Active Substance: RITUXIMAB
     Route: 065
  142. RITUXIMAB [Suspect]
     Active Substance: RITUXIMAB
     Route: 065
  143. RITUXIMAB [Suspect]
     Active Substance: RITUXIMAB
     Dosage: 1 EVERY 1 DAY
     Route: 065
  144. RITUXIMAB [Suspect]
     Active Substance: RITUXIMAB
     Route: 058
  145. SIMPONI [Suspect]
     Active Substance: GOLIMUMAB
     Indication: Rheumatoid arthritis
     Dosage: SOLUTION SUBCUTANEOUS
     Route: 058
  146. SIMPONI [Suspect]
     Active Substance: GOLIMUMAB
     Indication: Product used for unknown indication
     Dosage: SOLUTION FOR INJECTION IN PRE-FILLED PEN
     Route: 058
  147. SIMPONI [Suspect]
     Active Substance: GOLIMUMAB
     Dosage: 1 EVERY 1 WEEK
     Route: 058
  148. SIMPONI [Suspect]
     Active Substance: GOLIMUMAB
     Dosage: SUBCUTANEOUS SOLUTION
     Route: 058
  149. TRIAMCINOLONE [Suspect]
     Active Substance: TRIAMCINOLONE
     Indication: Juvenile idiopathic arthritis
     Route: 065
  150. TRIAMCINOLONE [Suspect]
     Active Substance: TRIAMCINOLONE
     Indication: Product used for unknown indication
  151. TRIAMCINOLONE ACETONIDE [Suspect]
     Active Substance: TRIAMCINOLONE ACETONIDE
     Indication: Juvenile idiopathic arthritis
     Dosage: SUSPENSION
     Route: 014
  152. TRIAMCINOLONE ACETONIDE [Suspect]
     Active Substance: TRIAMCINOLONE ACETONIDE
     Indication: Product used for unknown indication
     Route: 065
  153. PLAQUENIL [Suspect]
     Active Substance: HYDROXYCHLOROQUINE SULFATE
     Indication: Rheumatoid arthritis
     Dosage: ONCE DAILY
  154. PLAQUENIL [Suspect]
     Active Substance: HYDROXYCHLOROQUINE SULFATE
  155. RITUXAN [Suspect]
     Active Substance: RITUXIMAB
     Indication: Rheumatoid arthritis
     Dosage: 1 GM
  156. RITUXAN [Suspect]
     Active Substance: RITUXIMAB
  157. RITUXAN [Suspect]
     Active Substance: RITUXIMAB
  158. RITUXAN [Suspect]
     Active Substance: RITUXIMAB
     Dosage: 1 GM
  159. XELJANZ [Suspect]
     Active Substance: TOFACITINIB CITRATE
     Indication: Rheumatoid arthritis
     Dosage: TWO TIMES IN A DAY
  160. XELJANZ [Suspect]
     Active Substance: TOFACITINIB CITRATE
     Dosage: ONCE DAILY
  161. XELJANZ [Suspect]
     Active Substance: TOFACITINIB CITRATE
     Dosage: 1 EVERY 1 DAYS
     Route: 048
  162. XELJANZ [Suspect]
     Active Substance: TOFACITINIB CITRATE
     Dosage: 3 EVERY 1 DAYS
     Route: 048
  163. GOLD SODIUM THIOMALATE [Suspect]
     Active Substance: GOLD SODIUM THIOMALATE
     Indication: Rheumatoid arthritis
  164. HYDROXYCHLOROQUINE [Suspect]
     Active Substance: HYDROXYCHLOROQUINE
     Indication: Rheumatoid arthritis
     Dosage: ONCE DAILY
     Route: 065
  165. HYDROXYCHLOROQUINE [Suspect]
     Active Substance: HYDROXYCHLOROQUINE
  166. RISEDRONIC ACID [Suspect]
     Active Substance: RISEDRONIC ACID
     Indication: Rheumatoid arthritis
     Dosage: ONCE WEEKLY
  167. GOLD SODIUM THIOMALATE [Suspect]
     Active Substance: GOLD SODIUM THIOMALATE
     Indication: Rheumatoid arthritis
  168. RISEDRONATE SODIUM [Suspect]
     Active Substance: RISEDRONATE SODIUM
     Indication: Product used for unknown indication
     Dosage: ONCE WEEKLY
     Route: 048
  169. RISEDRONATE SODIUM [Suspect]
     Active Substance: RISEDRONATE SODIUM
  170. RISEDRONATE SODIUM [Suspect]
     Active Substance: RISEDRONATE SODIUM
  171. RISEDRONATE SODIUM [Suspect]
     Active Substance: RISEDRONATE SODIUM
     Route: 048
  172. RISEDRONATE SODIUM [Suspect]
     Active Substance: RISEDRONATE SODIUM
     Indication: Rheumatoid arthritis
     Dosage: ONCE IN A WEEK
  173. FOLIC ACID [Suspect]
     Active Substance: FOLIC ACID
     Indication: Product used for unknown indication
     Route: 065
  174. FOLIC ACID [Suspect]
     Active Substance: FOLIC ACID
     Indication: Rheumatoid arthritis
     Route: 065
  175. RISEDRONATE SODIUM [Suspect]
     Active Substance: RISEDRONATE SODIUM
     Indication: Product used for unknown indication
     Route: 065
  176. RISEDRONATE SODIUM [Suspect]
     Active Substance: RISEDRONATE SODIUM
     Dosage: 1 EVERY DAY
     Route: 048
  177. RISEDRONATE SODIUM [Suspect]
     Active Substance: RISEDRONATE SODIUM
     Dosage: 1 EVERY DAY
     Route: 048
  178. RISEDRONATE SODIUM [Suspect]
     Active Substance: RISEDRONATE SODIUM
     Dosage: 1 EVERY DAY
     Route: 048
  179. RISEDRONATE SODIUM [Suspect]
     Active Substance: RISEDRONATE SODIUM
     Route: 048
  180. RISEDRONATE SODIUM [Suspect]
     Active Substance: RISEDRONATE SODIUM
     Dosage: 1 EVERY 1 WEEK
     Route: 065
  181. CELECOXIB [Suspect]
     Active Substance: CELECOXIB
     Indication: Rheumatoid arthritis
     Route: 065
  182. CELECOXIB [Suspect]
     Active Substance: CELECOXIB
     Dosage: 1 EVERY 1 DAY
     Route: 065
  183. CELECOXIB [Suspect]
     Active Substance: CELECOXIB
     Route: 048
  184. CETIRIZINE HYDROCHLORIDE [Suspect]
     Active Substance: CETIRIZINE HYDROCHLORIDE
     Indication: Rheumatoid arthritis
     Route: 065
  185. CETIRIZINE HYDROCHLORIDE [Suspect]
     Active Substance: CETIRIZINE HYDROCHLORIDE
     Route: 042
  186. CORTISONE ACETATE [Suspect]
     Active Substance: CORTISONE ACETATE
     Indication: Rheumatoid arthritis
     Route: 061
  187. CORTISONE ACETATE [Suspect]
     Active Substance: CORTISONE ACETATE
     Route: 058
  188. COSENTYX [Suspect]
     Active Substance: SECUKINUMAB
     Indication: Psoriatic arthropathy
     Route: 065
  189. COSENTYX [Suspect]
     Active Substance: SECUKINUMAB
     Route: 061
  190. DESOXIMETASONE [Suspect]
     Active Substance: DESOXIMETASONE
     Indication: Rheumatoid arthritis
     Route: 048
  191. DICLOFENAC SODIUM [Suspect]
     Active Substance: DICLOFENAC SODIUM
     Indication: Product used for unknown indication
     Route: 065
  192. ERELZI [Suspect]
     Active Substance: ETANERCEPT-SZZS
     Indication: Rheumatoid arthritis
     Dosage: 1 EVERY 1 WEEK
     Route: 065
  193. ERELZI [Suspect]
     Active Substance: ETANERCEPT-SZZS
     Dosage: 1 EVERY 1 WEEK
     Route: 065
  194. ERELZI [Suspect]
     Active Substance: ETANERCEPT-SZZS
     Dosage: 1 EVERY 1 WEEK
     Route: 065
  195. ERELZI [Suspect]
     Active Substance: ETANERCEPT-SZZS
     Dosage: 1 EVERY 1 WEEK
     Route: 065
  196. ERELZI [Suspect]
     Active Substance: ETANERCEPT-SZZS
     Dosage: 1 EVERY 1 WEEK
     Route: 065
  197. ERELZI [Suspect]
     Active Substance: ETANERCEPT-SZZS
     Dosage: 1 EVERY 3 WEEK
     Route: 058
  198. ERELZI [Suspect]
     Active Substance: ETANERCEPT-SZZS
     Route: 065
  199. ERELZI [Suspect]
     Active Substance: ETANERCEPT-SZZS
     Dosage: 3 EVERY 1 WEEK
     Route: 058
  200. HUMAN IMMUNOGLOBULIN G [Suspect]
     Active Substance: HUMAN IMMUNOGLOBULIN G
     Indication: Rheumatoid arthritis
     Route: 065
  201. PSEUDOEPHEDRINE [Suspect]
     Active Substance: PSEUDOEPHEDRINE
     Indication: Product used for unknown indication
  202. PHTHALYLSULFATHIAZOLE [Suspect]
     Active Substance: PHTHALYLSULFATHIAZOLE
     Indication: Rheumatoid arthritis
     Route: 065
  203. TOCILIZUMAB [Suspect]
     Active Substance: TOCILIZUMAB
     Indication: Rheumatoid arthritis
     Route: 042
  204. TOCILIZUMAB [Suspect]
     Active Substance: TOCILIZUMAB
     Route: 042
  205. LEVOCETIRIZINE [Suspect]
     Active Substance: LEVOCETIRIZINE
     Indication: Product used for unknown indication
     Route: 065
  206. LEVOCETIRIZINE [Suspect]
     Active Substance: LEVOCETIRIZINE
     Indication: Rheumatoid arthritis
  207. ALENDRONATE SODIUM [Suspect]
     Active Substance: ALENDRONATE SODIUM
     Indication: Rheumatoid arthritis
     Route: 065
  208. CETIRIZINE [Suspect]
     Active Substance: CETIRIZINE HYDROCHLORIDE
     Indication: Rheumatoid arthritis
     Route: 065
  209. GAMMAGARD [Suspect]
     Active Substance: HUMAN IMMUNOGLOBULIN G
     Indication: Product used for unknown indication
     Route: 065
  210. LEVOCETIRIZINE HYDROCHLORIDE [Suspect]
     Active Substance: LEVOCETIRIZINE HYDROCHLORIDE
     Indication: Rheumatoid arthritis
     Route: 065
  211. NAPROXEN SODIUM [Suspect]
     Active Substance: NAPROXEN SODIUM
     Indication: Rheumatoid arthritis
     Route: 065
  212. NAPROXEN SODIUM [Suspect]
     Active Substance: NAPROXEN SODIUM
     Route: 065
  213. NAPROXEN SODIUM [Suspect]
     Active Substance: NAPROXEN SODIUM
     Dosage: 2 EVERY 1 DAY
     Route: 065
  214. XELJANZ [Suspect]
     Active Substance: TOFACITINIB CITRATE
     Indication: Rheumatoid arthritis
     Dosage: TWICE DAILY
  215. XELJANZ [Suspect]
     Active Substance: TOFACITINIB CITRATE
     Dosage: ONCE DAILY
  216. XELJANZ [Suspect]
     Active Substance: TOFACITINIB CITRATE
  217. XELJANZ [Suspect]
     Active Substance: TOFACITINIB CITRATE
     Dosage: 2 EVERY 1 DAY
     Route: 048
  218. XELJANZ [Suspect]
     Active Substance: TOFACITINIB CITRATE
     Dosage: 3 EVERY 1 DAYS
     Route: 048
  219. XELJANZ [Suspect]
     Active Substance: TOFACITINIB CITRATE
     Dosage: 1 EVERY 1 DAYS/ 1 EVERY 24 HOURS
     Route: 048
  220. SULFASALAZINE [Suspect]
     Active Substance: SULFASALAZINE
     Indication: Rheumatoid arthritis
     Route: 065
  221. SULFASALAZINE [Suspect]
     Active Substance: SULFASALAZINE
     Dosage: 1 EVERY 1 DAYS
     Route: 058
  222. SULFASALAZINE [Suspect]
     Active Substance: SULFASALAZINE
     Dosage: 1 EVERY 1 DAYS (NOT SPECIFIED)
     Route: 058
  223. SULFASALAZINE [Suspect]
     Active Substance: SULFASALAZINE
     Dosage: 1 EVERY 1 WEEKS
     Route: 065
  224. SULFASALAZINE [Suspect]
     Active Substance: SULFASALAZINE
     Dosage: 1 EVERY 1 WEEKS
     Route: 065
  225. SULFASALAZINE [Suspect]
     Active Substance: SULFASALAZINE
     Dosage: 1 EVERY 1 DAYS/ 1 EVERY 24 HOURS
     Route: 065
  226. QUETIAPINE FUMARATE [Concomitant]
     Active Substance: QUETIAPINE FUMARATE
     Indication: Product used for unknown indication
     Route: 065
  227. PANTOPRAZOLE [Concomitant]
     Active Substance: PANTOPRAZOLE
     Indication: Product used for unknown indication
     Route: 065
  228. RAMIPRIL [Concomitant]
     Active Substance: RAMIPRIL
     Indication: Product used for unknown indication
     Route: 065
  229. HYDROXYCHLOROQUINE SULFATE [Concomitant]
     Active Substance: HYDROXYCHLOROQUINE SULFATE
     Indication: Rheumatoid arthritis
     Dosage: ONCE IN ONE HOUR
  230. HYDROXYCHLOROQUINE SULFATE [Concomitant]
     Active Substance: HYDROXYCHLOROQUINE SULFATE
     Dosage: TWICE DAILY
  231. METHOTREXATE [Concomitant]
     Active Substance: METHOTREXATE
     Indication: Product used for unknown indication
     Dosage: DOSE: 17.5 MG
  232. PREDNISONE [Concomitant]
     Active Substance: PREDNISONE
     Indication: Rheumatoid arthritis
     Dosage: 2 EVERY 1 DAY
     Route: 048
  233. PREDNISONE [Concomitant]
     Active Substance: PREDNISONE
     Dosage: 2 EVERY 1 DAY
     Route: 048
  234. PREDNISONE [Concomitant]
     Active Substance: PREDNISONE
     Route: 065
  235. FOLIC ACID [Concomitant]
     Active Substance: FOLIC ACID
     Indication: Rheumatoid arthritis
     Route: 065
  236. FOLIC ACID [Concomitant]
     Active Substance: FOLIC ACID
     Route: 065
  237. WELLBUTRIN [Concomitant]
     Active Substance: BUPROPION HYDROCHLORIDE
     Indication: Product used for unknown indication
     Route: 065
  238. CALCIUM GLUCONATE [Concomitant]
     Active Substance: CALCIUM GLUCONATE
     Indication: Product used for unknown indication
     Route: 065
  239. CALCIUM GLUCONATE [Concomitant]
     Active Substance: CALCIUM GLUCONATE
     Route: 065
  240. CALCIUM GLUCONATE [Concomitant]
     Active Substance: CALCIUM GLUCONATE
     Route: 065
  241. CALCIUM GLUCONATE [Concomitant]
     Active Substance: CALCIUM GLUCONATE
     Route: 065
  242. PANTOPRAZOLE SODIUM [Concomitant]
     Active Substance: PANTOPRAZOLE SODIUM
     Indication: Product used for unknown indication

REACTIONS (62)
  - Anti-cyclic citrullinated peptide antibody positive [Not Recovered/Not Resolved]
  - Arthropathy [Not Recovered/Not Resolved]
  - Contraindicated product administered [Not Recovered/Not Resolved]
  - Drug hypersensitivity [Not Recovered/Not Resolved]
  - Drug ineffective [Not Recovered/Not Resolved]
  - Drug intolerance [Not Recovered/Not Resolved]
  - Foot deformity [Not Recovered/Not Resolved]
  - Hand deformity [Not Recovered/Not Resolved]
  - Hypertension [Not Recovered/Not Resolved]
  - Infection [Not Recovered/Not Resolved]
  - Intentional product use issue [Not Recovered/Not Resolved]
  - Loss of consciousness [Not Recovered/Not Resolved]
  - Mobility decreased [Not Recovered/Not Resolved]
  - Nausea [Not Recovered/Not Resolved]
  - Nodule [Not Recovered/Not Resolved]
  - Off label use [Not Recovered/Not Resolved]
  - Pulmonary fibrosis [Not Recovered/Not Resolved]
  - Red blood cell sedimentation rate abnormal [Not Recovered/Not Resolved]
  - Rheumatoid arthritis [Not Recovered/Not Resolved]
  - Rheumatoid factor positive [Not Recovered/Not Resolved]
  - Synovitis [Not Recovered/Not Resolved]
  - Ill-defined disorder [Not Recovered/Not Resolved]
  - Limb discomfort [Not Recovered/Not Resolved]
  - Malaise [Not Recovered/Not Resolved]
  - Ankle arthroplasty [Not Recovered/Not Resolved]
  - Foot operation [Not Recovered/Not Resolved]
  - Headache [Not Recovered/Not Resolved]
  - Adrenal insufficiency [Not Recovered/Not Resolved]
  - Arthritis [Not Recovered/Not Resolved]
  - Condition aggravated [Not Recovered/Not Resolved]
  - Diarrhoea [Not Recovered/Not Resolved]
  - Dizziness [Not Recovered/Not Resolved]
  - Gastroenteritis viral [Not Recovered/Not Resolved]
  - Hypocalcaemia [Not Recovered/Not Resolved]
  - Hypokalaemia [Not Recovered/Not Resolved]
  - Hypotension [Not Recovered/Not Resolved]
  - Immunodeficiency [Not Recovered/Not Resolved]
  - Joint destruction [Not Recovered/Not Resolved]
  - Limb discomfort [Not Recovered/Not Resolved]
  - Loss of personal independence in daily activities [Not Recovered/Not Resolved]
  - Obesity [Not Recovered/Not Resolved]
  - Pleural effusion [Not Recovered/Not Resolved]
  - Polyarthritis [Not Recovered/Not Resolved]
  - Psoriasis [Not Recovered/Not Resolved]
  - Pyrexia [Not Recovered/Not Resolved]
  - Septic shock [Not Recovered/Not Resolved]
  - Therapeutic product effect decreased [Not Recovered/Not Resolved]
  - Therapy non-responder [Not Recovered/Not Resolved]
  - Vomiting [Not Recovered/Not Resolved]
  - Wheelchair user [Not Recovered/Not Resolved]
  - Arthralgia [Not Recovered/Not Resolved]
  - C-reactive protein increased [Not Recovered/Not Resolved]
  - Hepatic enzyme increased [Not Recovered/Not Resolved]
  - Joint swelling [Not Recovered/Not Resolved]
  - Pneumonia [Not Recovered/Not Resolved]
  - Red blood cell sedimentation rate increased [Not Recovered/Not Resolved]
  - Treatment failure [Not Recovered/Not Resolved]
  - Arthralgia [Not Recovered/Not Resolved]
  - Hypogammaglobulinaemia [Not Recovered/Not Resolved]
  - Product use issue [Not Recovered/Not Resolved]
  - Blood pressure increased [Not Recovered/Not Resolved]
  - Drug tolerance [Not Recovered/Not Resolved]
